FAERS Safety Report 22224345 (Version 1)
Quarter: 2023Q2

REPORT INFORMATION
  Report Type: Spontaneous
  Country: FR (occurrence: FR)
  Receive Date: 20230418
  Receipt Date: 20230418
  Transmission Date: 20230722
  Serious: Yes (Life-Threatening)
  Sender: FDA-Public Use
  Company Number: FR-PFIZER INC-202300155783

PATIENT
  Age: 45 Year
  Sex: Female

DRUGS (1)
  1. CLINDAMYCIN [Suspect]
     Active Substance: CLINDAMYCIN
     Indication: Sinusitis
     Dosage: 300 MG, DAILY
     Dates: start: 202303, end: 202303

REACTIONS (4)
  - Lymphoedema [Unknown]
  - Face oedema [Unknown]
  - Pharyngeal oedema [Unknown]
  - Vertigo [Unknown]

NARRATIVE: CASE EVENT DATE: 20230301
